FAERS Safety Report 5336783-6 (Version None)
Quarter: 2007Q2

REPORT INFORMATION
  Report Type: 
  Country: None (occurrence: None)
  Receive Date: 20070529
  Receipt Date: 20070522
  Transmission Date: 20071010
  Serious: Yes (Death, Hospitalization)
  Sender: FDA-Public Use
  Company Number: PHMT2007CA00566

PATIENT
  Age: 40 Year
  Sex: Female

DRUGS (10)
  1. QUETIAPINE FUMARATE [Suspect]
     Dosage: 25 MG, BID
  2. OLANZAPINE [Suspect]
     Dosage: 15 MG, QHS
  3. RISPERIDONE [Suspect]
     Dosage: 6 MG QHS
  4. VALPROIC ACID [Suspect]
     Dosage: 250 MG IN THE MORNING AND 1000 MG QHS
  5. GABAPENTIN [Suspect]
     Dosage: 300 MG, BID
  6. OVRAL [Concomitant]
     Dosage: FOR 3 MONTHS
  7. ATORVASTATIN [Concomitant]
     Dosage: 10 MG, UNK
  8. NAPROXEN [Concomitant]
     Dosage: 500 MG, BID PRN
  9. CLOZARIL [Suspect]
     Indication: SCHIZOAFFECTIVE DISORDER
     Dosage: 300 MG QHS
     Route: 048
     Dates: start: 20010101, end: 20050101
  10. LEVOTHYROXINE SODIUM [Concomitant]
     Dosage: 0.1 MG DAILY

REACTIONS (11)
  - ANGIOPATHY [None]
  - APATHY [None]
  - COUGH [None]
  - DARK CIRCLES UNDER EYES [None]
  - DRUG LEVEL INCREASED [None]
  - FATIGUE [None]
  - INSOMNIA [None]
  - NASOPHARYNGITIS [None]
  - PALLOR [None]
  - PULMONARY OEDEMA [None]
  - WHITE BLOOD CELL COUNT INCREASED [None]
